FAERS Safety Report 4766168-2 (Version None)
Quarter: 2005Q3

REPORT INFORMATION
  Report Type: 
  Country: None (occurrence: None)
  Receive Date: 20050906
  Receipt Date: 20050823
  Transmission Date: 20060218
  Serious: Yes (Hospitalization, Other)
  Sender: FDA-Public Use
  Company Number: USA0508106323

PATIENT
  Age: 90 Year
  Sex: Female

DRUGS (2)
  1. FORTEO [Suspect]
     Dates: start: 20040201
  2. CELEBREX [Concomitant]

REACTIONS (10)
  - ASTHENIA [None]
  - CARDIAC VALVE DISEASE [None]
  - CONVULSION [None]
  - COUGH [None]
  - DIZZINESS POSTURAL [None]
  - FALL [None]
  - FLUID RETENTION [None]
  - LETHARGY [None]
  - OEDEMA PERIPHERAL [None]
  - PHARMACEUTICAL PRODUCT COMPLAINT [None]
